FAERS Safety Report 18243468 (Version 4)
Quarter: 2020Q4

REPORT INFORMATION
  Report Type: Spontaneous
  Country: US (occurrence: US)
  Receive Date: 20200908
  Receipt Date: 20201006
  Transmission Date: 20210113
  Serious: Yes (Death, Hospitalization, Other)
  Sender: FDA-Public Use
  Company Number: US-PFIZER INC-2020345500

PATIENT
  Age: 58 Year
  Sex: Female

DRUGS (1)
  1. IBRANCE [Suspect]
     Active Substance: PALBOCICLIB
     Indication: BREAST CANCER FEMALE
     Dosage: 125 MG, CYCLIC [125 MG DAILY FOR 21 DAYS ON, 7 DAYS OFF ON A 28 DAY CYCLE]

REACTIONS (7)
  - Diarrhoea [Unknown]
  - Hyperhidrosis [Unknown]
  - Death [Fatal]
  - Confusional state [Unknown]
  - Jaundice [Unknown]
  - Blood count abnormal [Unknown]
  - Pain [Unknown]

NARRATIVE: CASE EVENT DATE: 20200929
